FAERS Safety Report 14367927 (Version 1)
Quarter: 2018Q1

REPORT INFORMATION
  Report Type: Spontaneous
  Country: US (occurrence: US)
  Receive Date: 20180109
  Receipt Date: 20180109
  Transmission Date: 20180509
  Serious: No
  Sender: FDA-Public Use
  Company Number: US-ALLERGAN-1726004US

PATIENT
  Age: 54 Year
  Sex: Male

DRUGS (1)
  1. DALVANCE [Suspect]
     Active Substance: DALBAVANCIN
     Indication: CELLULITIS
     Dosage: UNK MG, UNK
     Route: 065
     Dates: start: 20170608, end: 20170608

REACTIONS (1)
  - Rash papular [Not Recovered/Not Resolved]
